FAERS Safety Report 7419155-X (Version None)
Quarter: 2011Q2

REPORT INFORMATION
  Report Type: 
  Country: None (occurrence: None)
  Receive Date: 20110415
  Receipt Date: 20110411
  Transmission Date: 20111010
  Serious: Yes (Death, Other)
  Sender: FDA-Public Use
  Company Number: SA-GENZYME-FLUD-1001052

PATIENT

DRUGS (8)
  1. FLUDARA [Suspect]
     Indication: BONE MARROW CONDITIONING REGIMEN
     Dosage: 30 MG/M2, QD DAYS -7 THROUGH -3
     Route: 065
  2. FLUDARA [Suspect]
     Indication: IMMUNODEFICIENCY
  3. THYMOGLOBULIN [Suspect]
     Indication: IMMUNODEFICIENCY
     Dosage: 5 MG/KG, QD DAYS -2 TO +2
     Route: 065
  4. IMMUNE GLOBULIN NOS [Concomitant]
     Indication: PRODUCT USED FOR UNKNOWN INDICATION
     Dosage: Q 3 WEEKS
     Route: 065
  5. THYMOGLOBULIN [Suspect]
     Indication: BONE MARROW CONDITIONING REGIMEN
  6. MELPHALAN HYDROCHLORIDE [Suspect]
     Indication: BONE MARROW CONDITIONING REGIMEN
  7. GRANULOCYTE COLONY STIMULATING FACTOR [Concomitant]
     Indication: PRODUCT USED FOR UNKNOWN INDICATION
     Dosage: 5 MCG/KG, QD STARTING DAY +8
     Route: 065
  8. MELPHALAN HYDROCHLORIDE [Suspect]
     Indication: IMMUNODEFICIENCY
     Dosage: 140 MG/M2, UNK DAY-2
     Route: 065

REACTIONS (4)
  - CYTOMEGALOVIRUS INFECTION [None]
  - ACUTE GRAFT VERSUS HOST DISEASE IN SKIN [None]
  - BACTERIAL SEPSIS [None]
  - FEBRILE NEUTROPENIA [None]
